FAERS Safety Report 7481667-0 (Version None)
Quarter: 2011Q2

REPORT INFORMATION
  Report Type: 
  Country: None (occurrence: None)
  Receive Date: 20110516
  Receipt Date: 20110506
  Transmission Date: 20111010
  Serious: Yes (Hospitalization)
  Sender: FDA-Public Use
  Company Number: GB-ASTRAZENECA-2011SE27187

PATIENT
  Age: 65 Year
  Sex: Female

DRUGS (5)
  1. SEROQUEL [Suspect]
     Route: 048
  2. MIRTAZAPINE [Concomitant]
  3. SEROQUEL [Suspect]
     Indication: DEPRESSION
     Route: 048
  4. SEROQUEL [Suspect]
     Indication: ANXIETY
     Route: 048
  5. SEROQUEL [Suspect]
     Route: 048

REACTIONS (3)
  - AGITATED DEPRESSION [None]
  - AGITATION [None]
  - ELECTROCONVULSIVE THERAPY [None]
